FAERS Safety Report 4876921-2 (Version None)
Quarter: 2006Q1

REPORT INFORMATION
  Report Type: 
  Country: None (occurrence: None)
  Receive Date: 20060110
  Receipt Date: 20051230
  Transmission Date: 20060701
  Serious: Yes (Other)
  Sender: FDA-Public Use
  Company Number: US-ROCHE-430413

PATIENT
  Age: 59 Year
  Sex: Female

DRUGS (5)
  1. COPEGUS [Suspect]
     Route: 048
     Dates: start: 20050615, end: 20051206
  2. INFERGEN [Concomitant]
     Dosage: TAKEN DAILY VIA INJECTABLE ROUTE. STRENGTH = 15 MCG/0.5 ML
     Route: 050
     Dates: start: 20050615, end: 20051206
  3. HYZAAR [Concomitant]
     Route: 048
     Dates: start: 20000615
  4. PAXIL CR [Concomitant]
     Indication: DEPRESSION
     Route: 048
     Dates: start: 20000615
  5. PROCRIT [Concomitant]
     Indication: ANAEMIA
     Route: 050
     Dates: start: 20050615, end: 20051206

REACTIONS (1)
  - CEREBROVASCULAR ACCIDENT [None]
